FAERS Safety Report 7948239-2 (Version None)
Quarter: 2011Q4

REPORT INFORMATION
  Report Type: 
  Country: None (occurrence: None)
  Receive Date: 20111125
  Receipt Date: 20111114
  Transmission Date: 20120403
  Serious: Yes (Life-Threatening, Other)
  Sender: FDA-Public Use
  Company Number: 2011P1010942

PATIENT
  Age: 68 Year
  Sex: Male

DRUGS (3)
  1. MINOCYCLINE HCL [Suspect]
     Indication: PLEURODESIS
     Dosage: 300 MG;X2;IPL
  2. LIDOCAINE HCL [Concomitant]
  3. SODIUM CHLORIDE [Concomitant]

REACTIONS (5)
  - BRONCHOPLEURAL FISTULA [None]
  - LUNG DISORDER [None]
  - SUBCUTANEOUS EMPHYSEMA [None]
  - CARDIO-RESPIRATORY ARREST [None]
  - EMPYEMA [None]
